FAERS Safety Report 8838507 (Version 2)
Quarter: 2012Q4

REPORT INFORMATION
  Report Type: Report from Study
  Country: ES (occurrence: ES)
  Receive Date: 20121012
  Receipt Date: 20121115
  Transmission Date: 20130627
  Serious: Yes (Hospitalization, Other)
  Sender: FDA-Public Use
  Company Number: ES-ABBOTT-12P-144-0980820-00

PATIENT
  Sex: Female
  Weight: 71 kg

DRUGS (9)
  1. HUMIRA PRE-FILLED SYRINGE [Suspect]
     Indication: PSORIASIS
     Dosage: Week 0
     Route: 058
     Dates: start: 201106
  2. HUMIRA PRE-FILLED SYRINGE [Suspect]
  3. ISONIAZIDE [Concomitant]
     Indication: ANTIBIOTIC PROPHYLAXIS
     Dates: end: 201201
  4. TOPICAL TREATMENT [Concomitant]
     Indication: PSORIASIS
     Route: 061
  5. EXTUR [Concomitant]
     Indication: PRODUCT USED FOR UNKNOWN INDICATION
  6. PRIMIVIL (LISONIPRILE) [Concomitant]
     Indication: PRODUCT USED FOR UNKNOWN INDICATION
  7. OMEPRAZOL [Concomitant]
     Indication: PRODUCT USED FOR UNKNOWN INDICATION
  8. PREVENCOR(ATORVASTATINE) [Concomitant]
     Indication: PRODUCT USED FOR UNKNOWN INDICATION
  9. EUTIROX [Concomitant]
     Indication: PRODUCT USED FOR UNKNOWN INDICATION

REACTIONS (20)
  - Encephalitis [Unknown]
  - Meningitis [Unknown]
  - Disseminated tuberculosis [Unknown]
  - Tuberculosis [Unknown]
  - Lymphadenopathy [Unknown]
  - Splenic lesion [Unknown]
  - Immunosuppression [Unknown]
  - Central nervous system lesion [Unknown]
  - Meningeal disorder [Unknown]
  - Cerebral ventricle dilatation [Unknown]
  - Pyrexia [Unknown]
  - Asthenia [Unknown]
  - Speech disorder [Unknown]
  - Chills [Unknown]
  - Malaise [Unknown]
  - Disorientation [Unknown]
  - Insomnia [Unknown]
  - Hallucination, visual [Unknown]
  - Vomiting [Unknown]
  - Nausea [Unknown]
